FAERS Safety Report 8853829 (Version 2)
Quarter: 2013Q3

REPORT INFORMATION
  Report Type: Spontaneous
  Country: US (occurrence: US)
  Receive Date: 20121022
  Receipt Date: 20130702
  Transmission Date: 20140515
  Serious: Yes (Other)
  Sender: FDA-Public Use
  Company Number: US-PFIZER INC-2012262476

PATIENT
  Age: 60 Year
  Sex: Female
  Weight: 63.49 kg

DRUGS (4)
  1. LYRICA [Suspect]
     Indication: FIBROMYALGIA
     Dosage: 75 MG, 2X/DAY
     Dates: start: 2012, end: 201209
  2. LYRICA [Suspect]
     Dosage: 75 MG, 1X/DAY
  3. LYRICA [Suspect]
     Dosage: 50 MG, 2X/DAY
  4. XANAX [Concomitant]
     Dosage: UNK

REACTIONS (3)
  - Back disorder [Unknown]
  - Pain [Unknown]
  - Malaise [Unknown]
